FAERS Safety Report 5379284-1 (Version None)
Quarter: 2007Q3

REPORT INFORMATION
  Report Type: 
  Country: None (occurrence: None)
  Receive Date: 20070705
  Receipt Date: 20070617
  Transmission Date: 20080115
  Serious: Yes (Other)
  Sender: FDA-Public Use
  Company Number: DK-SHR-DK-2007-023758

PATIENT
  Age: 19 Year
  Sex: Female
  Weight: 63 kg

DRUGS (1)
  1. YASMIN [Suspect]
     Indication: ORAL CONTRACEPTION
     Dosage: 1 TAB(S), 21D/28D
     Route: 048
     Dates: start: 20030301

REACTIONS (5)
  - BREAST PAIN [None]
  - NAUSEA [None]
  - PALPITATIONS [None]
  - RESPIRATORY DISORDER [None]
  - VOMITING [None]
